FAERS Safety Report 15640700 (Version 1)
Quarter: 2018Q4

REPORT INFORMATION
  Report Type: Report from Study
  Country: US (occurrence: US)
  Receive Date: 20181120
  Receipt Date: 20181120
  Transmission Date: 20190205
  Serious: Yes (Hospitalization, Other)
  Sender: FDA-Public Use
  Company Number: US-SA-2018SA146257

PATIENT
  Age: 55 Year
  Sex: Female

DRUGS (2)
  1. INSULIN GLARGINE/LIXISENATIDE [Suspect]
     Active Substance: INSULIN GLARGINE\LIXISENATIDE
     Indication: TYPE 2 DIABETES MELLITUS
     Dosage: 48 U
     Dates: start: 20170111
  2. INSULIN GLARGINE/LIXISENATIDE [Suspect]
     Active Substance: INSULIN GLARGINE\LIXISENATIDE
     Dosage: 50 U

REACTIONS (9)
  - Hypoglycaemia [Unknown]
  - Injection site swelling [Unknown]
  - Weight decreased [Unknown]
  - Pain [Unknown]
  - Hypoglycaemic seizure [Unknown]
  - Product storage error [Unknown]
  - Burning sensation [Unknown]
  - Injection site mass [Unknown]
  - Product dose omission [Unknown]

NARRATIVE: CASE EVENT DATE: 20170111
